FAERS Safety Report 25958097 (Version 1)
Quarter: 2025Q4

REPORT INFORMATION
  Report Type: Spontaneous
  Country: ZA (occurrence: ZA)
  Receive Date: 20251024
  Receipt Date: 20251024
  Transmission Date: 20260118
  Serious: Yes (Other)
  Sender: MYLAN
  Company Number: ZA-MYLANLABS-2025M1089775

PATIENT
  Sex: Female
  Weight: 60 kg

DRUGS (36)
  1. CELEBREX [Suspect]
     Active Substance: CELECOXIB
     Indication: Product used for unknown indication
     Dosage: 200 MILLIGRAM, QD
     Dates: start: 201702, end: 201707
  2. CELEBREX [Suspect]
     Active Substance: CELECOXIB
     Dosage: 200 MILLIGRAM, QD
     Route: 065
     Dates: start: 201702, end: 201707
  3. CELEBREX [Suspect]
     Active Substance: CELECOXIB
     Dosage: 200 MILLIGRAM, QD
     Route: 065
     Dates: start: 201702, end: 201707
  4. CELEBREX [Suspect]
     Active Substance: CELECOXIB
     Dosage: 200 MILLIGRAM, QD
     Dates: start: 201702, end: 201707
  5. ARCOXIA [Concomitant]
     Active Substance: ETORICOXIB
     Dosage: 90 MILLIGRAM
  6. ARCOXIA [Concomitant]
     Active Substance: ETORICOXIB
     Dosage: 90 MILLIGRAM
     Route: 065
  7. ARCOXIA [Concomitant]
     Active Substance: ETORICOXIB
     Dosage: 90 MILLIGRAM
     Route: 065
  8. ARCOXIA [Concomitant]
     Active Substance: ETORICOXIB
     Dosage: 90 MILLIGRAM
  9. METHOTREXATE [Concomitant]
     Active Substance: METHOTREXATE
     Dosage: 17.5 MILLIGRAM (WEEKLY)
  10. METHOTREXATE [Concomitant]
     Active Substance: METHOTREXATE
     Dosage: 17.5 MILLIGRAM (WEEKLY)
     Route: 065
  11. METHOTREXATE [Concomitant]
     Active Substance: METHOTREXATE
     Dosage: 17.5 MILLIGRAM (WEEKLY)
     Route: 065
  12. METHOTREXATE [Concomitant]
     Active Substance: METHOTREXATE
     Dosage: 17.5 MILLIGRAM (WEEKLY)
  13. CYCLOSPORINE [Concomitant]
     Active Substance: CYCLOSPORINE
     Dosage: 100 MILLIGRAM
  14. CYCLOSPORINE [Concomitant]
     Active Substance: CYCLOSPORINE
     Dosage: 100 MILLIGRAM
     Route: 065
  15. CYCLOSPORINE [Concomitant]
     Active Substance: CYCLOSPORINE
     Dosage: 100 MILLIGRAM
     Route: 065
  16. CYCLOSPORINE [Concomitant]
     Active Substance: CYCLOSPORINE
     Dosage: 100 MILLIGRAM
  17. CHLOROQUINE [Concomitant]
     Active Substance: CHLOROQUINE
     Dosage: 200 MILLIGRAM, QD
     Dates: start: 202102, end: 202104
  18. CHLOROQUINE [Concomitant]
     Active Substance: CHLOROQUINE
     Dosage: 200 MILLIGRAM, QD
     Route: 065
     Dates: start: 202102, end: 202104
  19. CHLOROQUINE [Concomitant]
     Active Substance: CHLOROQUINE
     Dosage: 200 MILLIGRAM, QD
     Route: 065
     Dates: start: 202102, end: 202104
  20. CHLOROQUINE [Concomitant]
     Active Substance: CHLOROQUINE
     Dosage: 200 MILLIGRAM, QD
     Dates: start: 202102, end: 202104
  21. LEFLUNOMIDE [Concomitant]
     Active Substance: LEFLUNOMIDE
     Dosage: 20 MILLIGRAM, QD
     Dates: start: 201710
  22. LEFLUNOMIDE [Concomitant]
     Active Substance: LEFLUNOMIDE
     Dosage: 20 MILLIGRAM, QD
     Route: 065
     Dates: start: 201710
  23. LEFLUNOMIDE [Concomitant]
     Active Substance: LEFLUNOMIDE
     Dosage: 20 MILLIGRAM, QD
     Route: 065
     Dates: start: 201710
  24. LEFLUNOMIDE [Concomitant]
     Active Substance: LEFLUNOMIDE
     Dosage: 20 MILLIGRAM, QD
     Dates: start: 201710
  25. INDOMETHACIN [Concomitant]
     Active Substance: INDOMETHACIN
     Dosage: 100 MILLIGRAM
  26. INDOMETHACIN [Concomitant]
     Active Substance: INDOMETHACIN
     Dosage: 100 MILLIGRAM
     Route: 065
  27. INDOMETHACIN [Concomitant]
     Active Substance: INDOMETHACIN
     Dosage: 100 MILLIGRAM
     Route: 065
  28. INDOMETHACIN [Concomitant]
     Active Substance: INDOMETHACIN
     Dosage: 100 MILLIGRAM
  29. HUMIRA [Concomitant]
     Active Substance: ADALIMUMAB
     Dosage: 40 MILLIGRAM, QW
     Dates: start: 20250707
  30. HUMIRA [Concomitant]
     Active Substance: ADALIMUMAB
     Dosage: 40 MILLIGRAM, QW
     Route: 065
     Dates: start: 20250707
  31. HUMIRA [Concomitant]
     Active Substance: ADALIMUMAB
     Dosage: 40 MILLIGRAM, QW
     Route: 065
     Dates: start: 20250707
  32. HUMIRA [Concomitant]
     Active Substance: ADALIMUMAB
     Dosage: 40 MILLIGRAM, QW
     Dates: start: 20250707
  33. XELJANZ [Concomitant]
     Active Substance: TOFACITINIB CITRATE
     Dosage: 5 MILLIGRAM, BID
     Dates: start: 20251015
  34. XELJANZ [Concomitant]
     Active Substance: TOFACITINIB CITRATE
     Dosage: 5 MILLIGRAM, BID
     Route: 048
     Dates: start: 20251015
  35. XELJANZ [Concomitant]
     Active Substance: TOFACITINIB CITRATE
     Dosage: 5 MILLIGRAM, BID
     Route: 048
     Dates: start: 20251015
  36. XELJANZ [Concomitant]
     Active Substance: TOFACITINIB CITRATE
     Dosage: 5 MILLIGRAM, BID
     Dates: start: 20251015

REACTIONS (4)
  - Gastritis erosive [Unknown]
  - Gastric ulcer [Unknown]
  - Gastric stenosis [Unknown]
  - Treatment failure [Unknown]
